FAERS Safety Report 7321016-1 (Version None)
Quarter: 2011Q1

REPORT INFORMATION
  Report Type: 
  Country: None (occurrence: None)
  Receive Date: 20110228
  Receipt Date: 20110218
  Transmission Date: 20110831
  Serious: Yes (Death)
  Sender: FDA-Public Use
  Company Number: US-JNJFOC-20100700382

PATIENT
  Sex: Female

DRUGS (10)
  1. FENTANYL-100 [Suspect]
     Indication: PAIN
     Route: 062
  2. OXYCODONE HCL [Suspect]
     Indication: ILL-DEFINED DISORDER
     Route: 065
  3. LASIX [Concomitant]
     Route: 065
  4. TENORMIN [Concomitant]
     Route: 065
  5. PERCOCET [Suspect]
     Indication: ILL-DEFINED DISORDER
     Dosage: Q 4 TO 6 HOUR
     Route: 065
  6. COMPAZINE [Concomitant]
  7. VALIUM [Suspect]
     Indication: ILL-DEFINED DISORDER
     Route: 065
  8. SYNTHROID [Concomitant]
     Route: 065
  9. DURAGESIC-50 [Suspect]
     Indication: ILL-DEFINED DISORDER
     Route: 062
  10. REQUIP [Concomitant]
     Route: 065

REACTIONS (2)
  - MYOCARDIAL INFARCTION [None]
  - TOXICITY TO VARIOUS AGENTS [None]
